FAERS Safety Report 10877860 (Version 3)
Quarter: 2015Q1

REPORT INFORMATION
  Report Type: Spontaneous
  Country: US (occurrence: US)
  Receive Date: 20150302
  Receipt Date: 20150311
  Transmission Date: 20150721
  Serious: Yes (Hospitalization, Other)
  Sender: FDA-Public Use
  Company Number: US-ASTRAZENECA-2015SE15816

PATIENT
  Age: 25771 Day
  Sex: Female
  Weight: 84.4 kg

DRUGS (12)
  1. PAROXETINE HCL [Concomitant]
     Active Substance: PAROXETINE HYDROCHLORIDE
     Route: 065
  2. PRILOSEC [Suspect]
     Active Substance: OMEPRAZOLE MAGNESIUM
     Indication: ABDOMINAL DISCOMFORT
     Route: 048
  3. BYDUREON [Suspect]
     Active Substance: EXENATIDE
     Indication: DIABETES MELLITUS
     Route: 058
     Dates: start: 20150216
  4. PRILOSEC [Suspect]
     Active Substance: OMEPRAZOLE MAGNESIUM
     Indication: GASTROOESOPHAGEAL REFLUX DISEASE
     Route: 048
  5. CRESTOR [Suspect]
     Active Substance: ROSUVASTATIN CALCIUM
     Indication: HYPERLIPIDAEMIA
     Route: 048
  6. LASIX [Concomitant]
     Active Substance: FUROSEMIDE
     Route: 065
  7. JANUMET XR [Concomitant]
     Active Substance: METFORMIN HYDROCHLORIDE\SITAGLIPTIN PHOSPHATE
     Dosage: 50/1000 MG
     Route: 065
  8. DILTIAZEM HCL ER [Concomitant]
     Route: 065
  9. BYETTA [Suspect]
     Active Substance: EXENATIDE
     Route: 065
  10. ENALAPRIL MAL [Concomitant]
     Route: 065
  11. ASPRIN [Concomitant]
     Active Substance: ASPIRIN
     Route: 065
  12. BYDUREON [Suspect]
     Active Substance: EXENATIDE
     Indication: TYPE 2 DIABETES MELLITUS
     Route: 058
     Dates: start: 20150216

REACTIONS (10)
  - Injection site haemorrhage [Unknown]
  - Blood pressure increased [Recovered/Resolved]
  - Pain in extremity [Unknown]
  - Adverse drug reaction [Unknown]
  - Vomiting [Recovered/Resolved]
  - Abdominal discomfort [Unknown]
  - Myocardial infarction [Recovered/Resolved]
  - Injection site pain [Unknown]
  - Device misuse [Unknown]
  - Hypotension [Unknown]

NARRATIVE: CASE EVENT DATE: 20140224
